FAERS Safety Report 5720048-4 (Version None)
Quarter: 2008Q2

REPORT INFORMATION
  Report Type: 
  Country: None (occurrence: None)
  Receive Date: 20080423
  Receipt Date: 20070308
  Transmission Date: 20081010
  Serious: Yes (Death, Life-Threatening, Hospitalization)
  Sender: FDA-Public Use
  Company Number: 233312

PATIENT
  Age: 56 Year
  Sex: Female

DRUGS (13)
  1. AVASTIN [Suspect]
     Indication: PANCREATIC CARCINOMA METASTATIC
     Dosage: 400 MG, Q2W, INTRAVENOUS
     Route: 042
     Dates: start: 20061030, end: 20061030
  2. GEMZAR [Concomitant]
  3. OXALIPLATIN [Concomitant]
  4. ANZEMET [Concomitant]
  5. ARANESP [Concomitant]
  6. ALOXI [Concomitant]
  7. DECADRON [Concomitant]
  8. DILAUDID [Concomitant]
  9. VALIUM [Concomitant]
  10. K-DUR (POTASSIUM) [Concomitant]
  11. ASPIRIN [Concomitant]
  12. ALBUTEROL INHALATION SOLUTION (ALBUTEROL/ALBUTEROL SULFATE) [Concomitant]
  13. CELEXA [Concomitant]

REACTIONS (2)
  - CATHETER RELATED INFECTION [None]
  - WOUND DEHISCENCE [None]
